FAERS Safety Report 6877642-7 (Version None)
Quarter: 2010Q3

REPORT INFORMATION
  Report Type: 
  Country: None (occurrence: None)
  Receive Date: 20100727
  Receipt Date: 20100514
  Transmission Date: 20110219
  Serious: No
  Sender: FDA-Public Use
  Company Number: US-ABBOTT-10P-163-0641046-00

PATIENT
  Sex: Female
  Weight: 74.002 kg

DRUGS (4)
  1. SYNTHROID [Suspect]
     Indication: HYPOTHYROIDISM
     Route: 048
     Dates: start: 20090101, end: 20090101
  2. SYNTHROID [Suspect]
     Route: 048
     Dates: start: 20090101
  3. SYNTHROID [Suspect]
     Dates: start: 20050101, end: 20090101
  4. SYNTHROID [Suspect]

REACTIONS (1)
  - PERIORBITAL OEDEMA [None]
